FAERS Safety Report 20031734 (Version 2)
Quarter: 2021Q4

REPORT INFORMATION
  Report Type: Report from Study
  Country: AE (occurrence: AE)
  Receive Date: 20211103
  Receipt Date: 20211109
  Transmission Date: 20220303
  Serious: Yes (Death, Hospitalization)
  Sender: FDA-Public Use
  Company Number: AE-ABBVIE-21K-166-4142824-00

PATIENT
  Age: 81 Year
  Sex: Male
  Weight: 55 kg

DRUGS (8)
  1. CARBIDOPA\LEVODOPA [Suspect]
     Active Substance: CARBIDOPA\LEVODOPA
     Indication: Parkinson^s disease
     Dosage: AMDOSE-15ML CONT.DOSE-6.9ML EXTRADOSE-5ML
     Route: 050
     Dates: start: 20210830, end: 20211028
  2. CARBIDOPA\LEVODOPA [Suspect]
     Active Substance: CARBIDOPA\LEVODOPA
     Dosage: AM DOSE15ML CONTINUOUS DOSE7.5ML EXTRA DOSE-5ML
     Route: 050
     Dates: start: 20211028, end: 20211105
  3. SEROQUEL [Concomitant]
     Active Substance: QUETIAPINE FUMARATE
     Indication: Antidepressant therapy
     Route: 050
     Dates: start: 20211003
  4. CLOPIDOGREL [Concomitant]
     Active Substance: CLOPIDOGREL BISULFATE
     Indication: Anticoagulant therapy
     Route: 050
  5. SOLIFENACIN SUCCINATE [Concomitant]
     Active Substance: SOLIFENACIN SUCCINATE
     Indication: Muscle spasms
     Route: 050
  6. ALFACALCIDOL [Concomitant]
     Active Substance: ALFACALCIDOL
     Indication: Renal disorder
     Dosage: 0.5 MCG
     Route: 050
  7. SODIUM BICARBONATE [Concomitant]
     Active Substance: SODIUM BICARBONATE
     Indication: Antacid therapy
     Route: 050
  8. VITAMINS NOS [Concomitant]
     Active Substance: VITAMINS
     Indication: Renal disorder
     Route: 050
     Dates: start: 20211105

REACTIONS (7)
  - Death [Fatal]
  - Oedema peripheral [Recovering/Resolving]
  - Urine output decreased [Unknown]
  - Oxygen saturation decreased [Recovering/Resolving]
  - Musculoskeletal stiffness [Recovering/Resolving]
  - Secretion discharge [Unknown]
  - Bradykinesia [Recovering/Resolving]

NARRATIVE: CASE EVENT DATE: 20210101
